FAERS Safety Report 6795954-2 (Version None)
Quarter: 2010Q2

REPORT INFORMATION
  Report Type: 
  Country: None (occurrence: None)
  Receive Date: 20100625
  Receipt Date: 20100618
  Transmission Date: 20101027
  Serious: Yes (Other)
  Sender: FDA-Public Use
  Company Number: B0661681A

PATIENT
  Age: 70 Year
  Sex: Male

DRUGS (4)
  1. ZOVIRAX [Suspect]
     Indication: DRUG USE FOR UNKNOWN INDICATION
     Route: 031
  2. ZOVIRAX [Concomitant]
     Dosage: 1000MG PER DAY
     Route: 048
     Dates: start: 20090201
  3. CARTEOLOL HYDROCHLORIDE [Concomitant]
     Indication: DRUG USE FOR UNKNOWN INDICATION
     Route: 065
  4. XALATAN [Concomitant]
     Indication: DRUG USE FOR UNKNOWN INDICATION
     Route: 031

REACTIONS (2)
  - CATARACT [None]
  - VISUAL ACUITY REDUCED [None]
